FAERS Safety Report 9749925 (Version 2)
Quarter: 2014Q1

REPORT INFORMATION
  Report Type: Spontaneous
  Country: US (occurrence: US)
  Receive Date: 20131212
  Receipt Date: 20140124
  Transmission Date: 20141002
  Serious: Yes (Hospitalization, Other)
  Sender: FDA-Public Use
  Company Number: US-PFIZER INC-2013354402

PATIENT
  Age: 77 Year
  Sex: Female
  Weight: 75.74 kg

DRUGS (4)
  1. VERAPAMIL HCL [Suspect]
     Indication: HYPERTENSION
     Dosage: 180 MG, UNK
     Route: 048
     Dates: start: 201310, end: 201312
  2. VERAPAMIL HCL [Suspect]
     Dosage: 120 MG, UNK
     Route: 048
     Dates: start: 201103
  3. VERAPAMIL HCL [Suspect]
     Dosage: 180 MG, UNK
     Route: 048
     Dates: start: 2011, end: 2011
  4. HYDRALAZINE [Concomitant]
     Dosage: 10 MG, UNK
     Route: 048

REACTIONS (2)
  - Atrial fibrillation [Unknown]
  - Atrial fibrillation [Recovered/Resolved]
